FAERS Safety Report 10440684 (Version 1)
Quarter: 2014Q3

REPORT INFORMATION
  Report Type: Spontaneous
  Country: US (occurrence: None)
  Receive Date: 20140908
  Receipt Date: 20140908
  Transmission Date: 20150326
  Serious: No
  Sender: FDA-Public Use
  Company Number: None

PATIENT
  Age: 24 Year
  Sex: Female
  Weight: 54.43 kg

DRUGS (1)
  1. BUPROPION HCL ER [Suspect]
     Active Substance: BUPROPION HYDROCHLORIDE
     Indication: DEPRESSION
     Dosage: 1 TABLET ONCE DAILY TAKEN BY MOUTH
     Route: 048
     Dates: start: 20140805, end: 20140907

REACTIONS (7)
  - Malaise [None]
  - Mental impairment [None]
  - Cerebral disorder [None]
  - Feeling abnormal [None]
  - Product substitution issue [None]
  - Memory impairment [None]
  - Product quality issue [None]

NARRATIVE: CASE EVENT DATE: 20140907
